FAERS Safety Report 6966762-4 (Version None)
Quarter: 2010Q3

REPORT INFORMATION
  Report Type: 
  Country: None (occurrence: None)
  Receive Date: 20100906
  Receipt Date: 20100831
  Transmission Date: 20110219
  Serious: Yes (Death, Life-Threatening, Hospitalization, Disabling, Other)
  Sender: FDA-Public Use
  Company Number: US-BRISTOL-MYERS SQUIBB COMPANY-15237530

PATIENT
  Age: 65 Year
  Sex: Male

DRUGS (23)
  1. WARFARIN SODIUM [Suspect]
     Indication: THROMBOSIS PROPHYLAXIS
     Dosage: 1,2,5MG;25MAR-24AUG09 21WK5D;27AUG-24SEP09 4WK1D;28SEP-6FB2010 18WK6D;13FB-16JUN2010 17WK5D
     Route: 048
     Dates: start: 20090325, end: 20100616
  2. WARFARIN SODIUM [Suspect]
     Indication: CEREBROVASCULAR ACCIDENT PROPHYLAXIS
     Dosage: 1,2,5MG;25MAR-24AUG09 21WK5D;27AUG-24SEP09 4WK1D;28SEP-6FB2010 18WK6D;13FB-16JUN2010 17WK5D
     Route: 048
     Dates: start: 20090325, end: 20100616
  3. COUMADIN [Suspect]
     Indication: ATRIAL FIBRILLATION
     Dosage: DURATION:6 WEEKS+1 DAY
     Route: 048
     Dates: start: 20100617, end: 20100729
  4. RIVAROXABAN [Suspect]
     Indication: CEREBROVASCULAR ACCIDENT PROPHYLAXIS
     Dosage: 1,2,5MG;25MAR-24AUG09 21WK5D;27AUG-24SEP09 4WK1D;28SEP-6FB2010 18WK6D;13FB-16JUN2010 17WK5D
     Route: 048
     Dates: start: 20090325, end: 20100616
  5. RIVAROXABAN [Suspect]
     Indication: THROMBOSIS PROPHYLAXIS
     Dosage: 1,2,5MG;25MAR-24AUG09 21WK5D;27AUG-24SEP09 4WK1D;28SEP-6FB2010 18WK6D;13FB-16JUN2010 17WK5D
     Route: 048
     Dates: start: 20090325, end: 20100616
  6. DIGOXIN [Suspect]
     Indication: CARDIAC FAILURE CONGESTIVE
     Route: 048
     Dates: start: 20060101, end: 20100729
  7. FUROSEMIDE [Suspect]
     Indication: CARDIAC FAILURE CONGESTIVE
  8. LEVOTHYROXINE [Concomitant]
     Route: 048
     Dates: start: 20060101, end: 20100729
  9. CARVEDILOL [Concomitant]
     Indication: HYPERTENSION
     Dosage: DURATION:1YR 16WEEKS
     Route: 048
     Dates: start: 20090408, end: 20100729
  10. CARVEDILOL [Concomitant]
     Indication: CARDIAC FAILURE
     Dosage: DURATION:1YR 16WEEKS
     Route: 048
     Dates: start: 20090408, end: 20100729
  11. GLYBURIDE [Concomitant]
     Indication: TYPE 2 DIABETES MELLITUS
     Route: 048
     Dates: start: 20060101, end: 20100729
  12. RANITIDINE [Concomitant]
  13. POTASSIUM [Concomitant]
     Route: 048
     Dates: start: 20060101, end: 20100729
  14. REGULAR INSULIN [Concomitant]
     Indication: TYPE 2 DIABETES MELLITUS
     Route: 058
     Dates: start: 20100709, end: 20100729
  15. ZOFRAN [Concomitant]
     Indication: VOMITING
     Dates: start: 20100709, end: 20100729
  16. AMIODARONE [Concomitant]
     Indication: ARRHYTHMIA
     Route: 048
     Dates: start: 20100709, end: 20100729
  17. PROVENTIL [Concomitant]
     Route: 055
     Dates: start: 20100709, end: 20100729
  18. ATROPINE [Concomitant]
     Dates: start: 20100709
  19. PROTONIX [Concomitant]
     Indication: GASTRITIS
     Route: 042
     Dates: start: 20100726, end: 20100729
  20. LASIX [Concomitant]
     Indication: CARDIAC FAILURE CONGESTIVE
     Dosage: DURATION:1 WEEKS 4 DAYS
     Route: 042
     Dates: start: 20100719, end: 20100729
  21. MAXIPIME [Concomitant]
     Indication: INFECTION
     Dosage: DURATION:1 WEEK 4 DAYS
     Route: 042
     Dates: start: 20100719, end: 20100729
  22. DOBUTAMINE HCL [Concomitant]
     Indication: HYPOTENSION
     Dosage: DURATION:1 WEEKS +4 DAYS
     Route: 041
     Dates: start: 20100719, end: 20100729
  23. LEVOPHED [Concomitant]
     Indication: HYPOTENSION
     Dosage: DURATION:1 WEEKS + 4 DAYS
     Route: 041
     Dates: start: 20100719, end: 20100729

REACTIONS (4)
  - CARDIAC FAILURE CONGESTIVE [None]
  - CARDIOGENIC SHOCK [None]
  - HYPOKALAEMIA [None]
  - SEPTIC SHOCK [None]
